FAERS Safety Report 9291699 (Version 2)
Quarter: 2013Q4

REPORT INFORMATION
  Report Type: Report from Study
  Country: GB (occurrence: GB)
  Receive Date: 20130516
  Receipt Date: 20131111
  Transmission Date: 20140711
  Serious: Yes (Death)
  Sender: FDA-Public Use
  Company Number: GB-ROCHE-1224857

PATIENT
  Age: 72 Year
  Sex: Female

DRUGS (12)
  1. RITUXIMAB [Suspect]
     Indication: RHEUMATOID ARTHRITIS
     Dosage: LAST DOSE PRIOR TO EVENT IN JAN/2008
     Route: 065
     Dates: start: 20080103
  2. AZATHIOPRINE [Concomitant]
     Route: 065
     Dates: start: 20080903
  3. FRUSEMIDE [Concomitant]
     Route: 065
  4. MIRCERA [Concomitant]
     Route: 065
  5. ALFACALCIDOL [Concomitant]
     Dosage: 2 TABLETS
     Route: 065
  6. PREDNISOLONE [Concomitant]
     Route: 065
  7. BISOPROLOL [Concomitant]
     Route: 065
  8. MIXTARD [Concomitant]
     Dosage: 30/70
     Route: 065
  9. ATORVASTATIN [Concomitant]
     Route: 065
  10. AMITRIPTYLINE [Concomitant]
     Route: 065
  11. OMEPRAZOLE [Concomitant]
     Route: 065
  12. AZATHIOPRINE [Concomitant]
     Route: 065

REACTIONS (1)
  - Anal squamous cell carcinoma [Fatal]
